FAERS Safety Report 4292354-4 (Version None)
Quarter: 2004Q1

REPORT INFORMATION
  Report Type: 
  Country: None (occurrence: None)
  Receive Date: 20040126
  Receipt Date: 20030903
  Transmission Date: 20041129
  Serious: No
  Sender: FDA-Public Use
  Company Number: USA030946206

PATIENT
  Age: 51 Year
  Sex: Female

DRUGS (8)
  1. FORTEO [Suspect]
     Indication: OSTEOPOROSIS
     Dosage: 20 UG/DAY
     Dates: start: 20030731
  2. ENBREL [Concomitant]
  3. PREDNISONE [Concomitant]
  4. TRAZADONE (TRAZODONE) [Concomitant]
  5. PROTONIX [Concomitant]
  6. LOESTRIN 1.5/30 [Concomitant]
  7. FEMHRT [Concomitant]
  8. CALCIUM [Concomitant]

REACTIONS (2)
  - MYALGIA [None]
  - PAIN IN EXTREMITY [None]
